FAERS Safety Report 7231020-X (Version None)
Quarter: 2011Q1

REPORT INFORMATION
  Report Type: 
  Country: None (occurrence: None)
  Receive Date: 20110118
  Receipt Date: 20110112
  Transmission Date: 20110831
  Serious: Yes (Hospitalization)
  Sender: FDA-Public Use
  Company Number: CN-ROCHE-752722

PATIENT
  Age: 55 Year
  Sex: Male
  Weight: 79 kg

DRUGS (2)
  1. CAPECITABINE [Suspect]
     Indication: COLON CANCER
     Dosage: INDICATION WAS REPORTED AS COLON CANCER AND DUODENUM CANCER.
     Route: 048
     Dates: start: 20101128, end: 20101223
  2. OXALIPLATIN [Suspect]
     Indication: COLON CANCER
     Dosage: INDICATION WAS REPORTED AS COLON CANCER AND DUODENUM CANCER.
     Route: 041
     Dates: start: 20101128, end: 20101223

REACTIONS (1)
  - INTESTINAL OBSTRUCTION [None]
